FAERS Safety Report 22242317 (Version 13)
Quarter: 2023Q4

REPORT INFORMATION
  Report Type: Spontaneous
  Country: US (occurrence: US)
  Receive Date: 20230422
  Receipt Date: 20231125
  Transmission Date: 20240110
  Serious: Yes (Hospitalization)
  Sender: FDA-Public Use
  Company Number: US-UNITED THERAPEUTICS-UNT-2023-010771

PATIENT
  Sex: Male
  Weight: 71.293 kg

DRUGS (24)
  1. REMODULIN [Suspect]
     Active Substance: TREPROSTINIL
     Indication: Pulmonary arterial hypertension
     Dosage: 0.015 ?G/KG (SELF FILL 1.9 ML/CASSETTE AT PUMP RATE OF 19 MCL/HOUR), CONTINUING
     Route: 058
     Dates: start: 202304
  2. REMODULIN [Suspect]
     Active Substance: TREPROSTINIL
     Dosage: UNK, CONTINUING
     Route: 058
     Dates: start: 20230412, end: 20230501
  3. REMODULIN [Suspect]
     Active Substance: TREPROSTINIL
     Indication: Pulmonary arterial hypertension
     Dosage: 0.015 ?G/KG (SELF-FILL CASSETTE WITH 1.9 ML; RATE OF 19 MCL PER HOUR), CONTINUING
     Route: 058
     Dates: start: 202305
  4. REMODULIN [Suspect]
     Active Substance: TREPROSTINIL
     Dosage: UNK (SELF-FILL CASSETTE WITH 3 ML; INFUSE VIA REMUNITY PUMP SUBCUTANEOUSLY AT A RATE OF 47 MCL/HOUR)
     Route: 058
     Dates: start: 2023
  5. REMODULIN [Suspect]
     Active Substance: TREPROSTINIL
     Dosage: UNK, CONTINUING
     Route: 058
     Dates: start: 20230501, end: 2023
  6. ORENITRAM [Suspect]
     Active Substance: TREPROSTINIL
     Indication: Pulmonary arterial hypertension
     Dosage: 3.125 MG, TID
     Route: 048
     Dates: start: 2023
  7. ORENITRAM [Suspect]
     Active Substance: TREPROSTINIL
     Dosage: UNK
     Route: 048
     Dates: start: 20230801
  8. ORENITRAM [Suspect]
     Active Substance: TREPROSTINIL
     Indication: Pulmonary arterial hypertension
     Route: 048
  9. ORENITRAM [Suspect]
     Active Substance: TREPROSTINIL
     Indication: Pulmonary arterial hypertension
     Route: 048
  10. ORENITRAM [Suspect]
     Active Substance: TREPROSTINIL
     Indication: Pulmonary arterial hypertension
     Route: 048
  11. GABAPENTIN [Suspect]
     Active Substance: GABAPENTIN
     Indication: Product used for unknown indication
     Dosage: UNK
     Route: 065
     Dates: end: 202304
  12. SILDENAFIL [Concomitant]
     Active Substance: SILDENAFIL
     Indication: Product used for unknown indication
     Dosage: UNK
     Route: 065
  13. TAMSULOSIN HYDROCHLORIDE [Concomitant]
     Active Substance: TAMSULOSIN HYDROCHLORIDE
     Indication: Product used for unknown indication
     Route: 065
  14. MAGNESIUM OXIDE [Concomitant]
     Active Substance: MAGNESIUM OXIDE
     Indication: Product used for unknown indication
     Route: 065
  15. KETAMINE HYDROCHLORIDE [Concomitant]
     Active Substance: KETAMINE HYDROCHLORIDE
     Indication: Product used for unknown indication
     Route: 065
  16. LECITHIN [Concomitant]
     Active Substance: LECITHIN
     Indication: Product used for unknown indication
     Route: 065
  17. POTASSIUM CHLORIDE [Concomitant]
     Active Substance: POTASSIUM CHLORIDE
     Indication: Product used for unknown indication
     Route: 065
  18. CLONIDINE [Concomitant]
     Active Substance: CLONIDINE
     Indication: Product used for unknown indication
     Route: 065
  19. KETOPROFEN [Concomitant]
     Active Substance: KETOPROFEN
     Indication: Product used for unknown indication
     Route: 065
  20. BUMETANIDE [Concomitant]
     Active Substance: BUMETANIDE
     Indication: Product used for unknown indication
     Route: 065
  21. OXYGEN [Concomitant]
     Active Substance: OXYGEN
     Indication: Product used for unknown indication
     Route: 065
  22. LIDOCAINE HYDROCHLORIDE [Concomitant]
     Active Substance: DEXTROSE MONOHYDRATE\EPINEPHRINE\EPINEPHRINE BITARTRATE\LIDOCAINE\LIDOCAINE HYDROCHLORIDE\LIDOCAINE
     Indication: Product used for unknown indication
     Route: 065
  23. AMITRIPTYLINE HYDROCHLORIDE [Concomitant]
     Active Substance: AMITRIPTYLINE HYDROCHLORIDE
     Indication: Product used for unknown indication
     Route: 065
  24. POLOXAMER [Concomitant]
     Active Substance: POLOXAMER
     Indication: Product used for unknown indication
     Route: 065

REACTIONS (28)
  - Abdominal pain [Recovered/Resolved]
  - Infusion site erythema [Recovered/Resolved]
  - Subcutaneous drug absorption impaired [Recovered/Resolved]
  - Infusion site nodule [Unknown]
  - Infusion site inflammation [Unknown]
  - Bone pain [Not Recovered/Not Resolved]
  - Infusion site pain [Not Recovered/Not Resolved]
  - Dysphemia [Recovered/Resolved]
  - Neuralgia [Not Recovered/Not Resolved]
  - Infusion site dryness [Not Recovered/Not Resolved]
  - Infusion site swelling [Recovered/Resolved]
  - Pain in extremity [Not Recovered/Not Resolved]
  - Feeling abnormal [Unknown]
  - Insomnia [Not Recovered/Not Resolved]
  - Dermatitis contact [Unknown]
  - Extra dose administered [Recovered/Resolved]
  - Device difficult to use [Unknown]
  - Device power source issue [Unknown]
  - Device power source issue [Unknown]
  - Unintentional medical device removal [Unknown]
  - Device maintenance issue [Unknown]
  - Depression [Not Recovered/Not Resolved]
  - Decreased activity [Not Recovered/Not Resolved]
  - Gastroenteritis viral [Unknown]
  - Vomiting [Unknown]
  - Infusion site reaction [Unknown]
  - Dyspnoea [Unknown]
  - Migraine [Unknown]

NARRATIVE: CASE EVENT DATE: 20230101
